FAERS Safety Report 23374682 (Version 1)
Quarter: 2024Q1

REPORT INFORMATION
  Report Type: Spontaneous
  Country: US (occurrence: US)
  Receive Date: 20240105
  Receipt Date: 20240105
  Transmission Date: 20240410
  Serious: No
  Sender: FDA-Public Use
  Company Number: US-ABBVIE-5571517

PATIENT
  Sex: Female

DRUGS (5)
  1. BOTOX [Suspect]
     Active Substance: ONABOTULINUMTOXINA
     Indication: Skin wrinkling
     Dosage: TIME INTERVAL: AS NECESSARY: 65-75 UNITS UPPER FACE ( FOREHEAD, FROWN, NOSE SLIMMING,  BROW LIFT ...
     Route: 065
  2. BOTOX [Suspect]
     Active Substance: ONABOTULINUMTOXINA
     Indication: Skin wrinkling
     Dosage: TIME INTERVAL: AS NECESSARY: 40-55 UNITS FOR LOWER FACE( LIP FLIP, JAWLINE LIFTING, CHIN PEBBLES,...
     Route: 065
  3. Daxxi [Concomitant]
     Indication: Product used for unknown indication
  4. DYSPORT [Concomitant]
     Active Substance: ABOBOTULINUMTOXINA
     Indication: Product used for unknown indication
  5. JEUVEAU [Concomitant]
     Active Substance: PRABOTULINUMTOXINA-XVFS
     Indication: Product used for unknown indication

REACTIONS (1)
  - Off label use [Unknown]
